FAERS Safety Report 10950646 (Version 1)
Quarter: 2015Q1

REPORT INFORMATION
  Report Type: Spontaneous
  Country: US (occurrence: US)
  Receive Date: 20150324
  Receipt Date: 20150324
  Transmission Date: 20150721
  Serious: No
  Sender: FDA-Public Use
  Company Number: US-GLAXOSMITHKLINE-US2015GSK038673

PATIENT
  Sex: Female
  Weight: 68.27 kg

DRUGS (1)
  1. MEKINIST [Suspect]
     Active Substance: TRAMETINIB DIMETHYL SULFOXIDE
     Indication: PLASMA CELL MYELOMA
     Dosage: 2 MG, QD
     Route: 048
     Dates: start: 20140202

REACTIONS (2)
  - Drug effect increased [Unknown]
  - Adverse drug reaction [Unknown]
